FAERS Safety Report 5176710-8 (Version None)
Quarter: 2006Q4

REPORT INFORMATION
  Report Type: 
  Country: None (occurrence: None)
  Receive Date: 20061218
  Receipt Date: 20061214
  Transmission Date: 20070319
  Serious: Yes (Death, Hospitalization)
  Sender: FDA-Public Use
  Company Number: PHRM2006FR03326

PATIENT
  Age: 69 Year
  Sex: Male

DRUGS (3)
  1. NISIS [Suspect]
     Route: 048
  2. ZOLPIDEM TARTRATE [Suspect]
  3. TRICYCLIC ANTIDEPRESSANTS [Suspect]

REACTIONS (4)
  - BLOOD PRESSURE DECREASED [None]
  - CIRCULATORY COLLAPSE [None]
  - MULTI-ORGAN FAILURE [None]
  - SUICIDE ATTEMPT [None]
